FAERS Safety Report 10378038 (Version 4)
Quarter: 2014Q3

REPORT INFORMATION
  Report Type: Spontaneous
  Country: IT (occurrence: None)
  Receive Date: 20140807
  Receipt Date: 20140815
  Transmission Date: 20150326
  Serious: Yes (Hospitalization)
  Sender: FDA-Public Use
  Company Number: AUR-APL-2014-08250

PATIENT
  Age: 83 Year
  Sex: Female
  Weight: 85 kg

DRUGS (5)
  1. CARDIOASPIRIN [Concomitant]
     Active Substance: ASPIRIN
  2. PARACETAMOL (PARACETAMOL) UNKNOWN, UNKNOWN [Concomitant]
     Active Substance: ACETAMINOPHEN
     Indication: PRODUCT USED FOR UNKNOWN INDICATION
     Route: 048
     Dates: start: 20140417, end: 20140423
  3. SIMVASTATIN. [Suspect]
     Active Substance: SIMVASTATIN
     Indication: PRODUCT USED FOR UNKNOWN INDICATION
     Route: 048
     Dates: start: 20140401, end: 20140422
  4. ALPRAZOLAM (ALPRAZOLAM) DROPS (FOR ORAL USE) [Concomitant]
  5. ALLOPURINOL. [Suspect]
     Active Substance: ALLOPURINOL
     Indication: PRODUCT USED FOR UNKNOWN INDICATION
     Route: 048
     Dates: start: 20140401, end: 20140422

REACTIONS (10)
  - Alpha-1 acid glycoprotein increased [None]
  - C-reactive protein abnormal [None]
  - Hepatic function abnormal [None]
  - Rash [None]
  - Alanine aminotransferase increased [None]
  - Toxic skin eruption [None]
  - Hyperpyrexia [None]
  - Aspartate aminotransferase increased [None]
  - Gamma-glutamyltransferase increased [None]
  - Hepatotoxicity [None]

NARRATIVE: CASE EVENT DATE: 20140417
